FAERS Safety Report 8489724-7 (Version None)
Quarter: 2012Q3

REPORT INFORMATION
  Report Type: 
  Country: None (occurrence: None)
  Receive Date: 20120705
  Receipt Date: 20120625
  Transmission Date: 20120928
  Serious: Yes (Hospitalization)
  Sender: FDA-Public Use
  Company Number: FR-GLAXOSMITHKLINE-B0810265A

PATIENT
  Sex: Female

DRUGS (8)
  1. ESCITALOPRAM [Concomitant]
     Route: 065
     Dates: end: 20120101
  2. CLOBAZAM [Concomitant]
     Route: 065
     Dates: end: 20120101
  3. PAROXETINE HCL [Suspect]
     Indication: PRODUCT USED FOR UNKNOWN INDICATION
     Dosage: 1UNIT PER DAY
     Route: 048
     Dates: start: 20120201, end: 20120515
  4. VICTRELIS [Suspect]
     Indication: PRODUCT USED FOR UNKNOWN INDICATION
     Dosage: 800MG THREE TIMES PER DAY
     Route: 048
     Dates: start: 20120130, end: 20120515
  5. INTERFERON ALFA-2B [Concomitant]
     Indication: HEPATITIS C
     Route: 065
     Dates: start: 20120102
  6. REBETOL [Concomitant]
     Indication: HEPATITIS C
     Route: 065
     Dates: start: 20120102
  7. IMOVANE [Concomitant]
     Route: 065
  8. XANAX [Suspect]
     Indication: PRODUCT USED FOR UNKNOWN INDICATION
     Dosage: .5MG PER DAY
     Route: 048
     Dates: start: 20120201, end: 20120515

REACTIONS (13)
  - DERMATITIS EXFOLIATIVE [None]
  - SKIN BURNING SENSATION [None]
  - EYELID DISORDER [None]
  - PANCYTOPENIA [None]
  - RASH [None]
  - DYSPNOEA EXERTIONAL [None]
  - ECZEMA [None]
  - LYMPHADENOPATHY [None]
  - CONJUNCTIVITIS [None]
  - FACE OEDEMA [None]
  - DRUG RASH WITH EOSINOPHILIA AND SYSTEMIC SYMPTOMS [None]
  - PRURITUS [None]
  - PYREXIA [None]
